FAERS Safety Report 22264081 (Version 1)
Quarter: 2023Q2

REPORT INFORMATION
  Report Type: Spontaneous
  Country: US (occurrence: US)
  Receive Date: 20230428
  Receipt Date: 20230428
  Transmission Date: 20230721
  Serious: Yes (Life-Threatening, Hospitalization, Other)
  Sender: FDA-Public Use
  Company Number: US-drreddys-LIT/USA/23/0164345

PATIENT
  Sex: Male

DRUGS (22)
  1. DEXAMETHASONE [Suspect]
     Active Substance: DEXAMETHASONE
     Indication: B-cell type acute leukaemia
  2. DEXAMETHASONE [Suspect]
     Active Substance: DEXAMETHASONE
     Dosage: DAY 1- DAY 4 AND DAY 11-DAY 14
  3. MITOXANTRONE [Suspect]
     Active Substance: MITOXANTRONE HYDROCHLORIDE
     Indication: B-cell type acute leukaemia
  4. VINCRISTINE [Suspect]
     Active Substance: VINCRISTINE
     Indication: B-cell type acute leukaemia
  5. VINCRISTINE [Suspect]
     Active Substance: VINCRISTINE
     Dosage: DAY 1 AND DAY 8
     Route: 042
  6. PEGASPARGASE [Suspect]
     Active Substance: PEGASPARGASE
     Indication: B-cell type acute leukaemia
  7. FLUDARABINE [Suspect]
     Active Substance: FLUDARABINE PHOSPHATE
     Indication: B-cell type acute leukaemia
  8. CYTARABINE [Suspect]
     Active Substance: CYTARABINE
     Indication: B-cell type acute leukaemia
  9. CYTARABINE [Suspect]
     Active Substance: CYTARABINE
     Dosage: DAY 8
  10. METHOTREXATE [Suspect]
     Active Substance: METHOTREXATE
     Indication: B-cell type acute leukaemia
  11. METHOTREXATE [Suspect]
     Active Substance: METHOTREXATE
     Route: 037
  12. CYCLOPHOSPHAMIDE [Suspect]
     Active Substance: CYCLOPHOSPHAMIDE
     Indication: B-cell type acute leukaemia
  13. CYCLOPHOSPHAMIDE [Suspect]
     Active Substance: CYCLOPHOSPHAMIDE
     Dosage: DAYS 1-3
     Route: 042
  14. RITUXIMAB [Suspect]
     Active Substance: RITUXIMAB
     Indication: Leukocytosis
     Dosage: DAY 2 AND DAY 8
     Route: 042
  15. INOTUZUMAB OZOGAMICIN [Suspect]
     Active Substance: INOTUZUMAB OZOGAMICIN
     Indication: Leukocytosis
     Dosage: INITIALLY
     Route: 042
  16. INOTUZUMAB OZOGAMICIN [Suspect]
     Active Substance: INOTUZUMAB OZOGAMICIN
     Dosage: DAY 2, 8 AND 23
     Route: 042
  17. BLINATUMOMAB [Suspect]
     Active Substance: BLINATUMOMAB
     Indication: Leukocytosis
     Dosage: FROM DAY 17 UNTIL DAY 20
     Route: 042
  18. BLINATUMOMAB [Suspect]
     Active Substance: BLINATUMOMAB
     Dosage: FROM DAY 21 TO DAY 28
     Route: 042
  19. TOCILIZUMAB [Suspect]
     Active Substance: TOCILIZUMAB
     Indication: Product used for unknown indication
  20. HYDROXYUREA [Suspect]
     Active Substance: HYDROXYUREA
     Indication: B-cell type acute leukaemia
  21. HYDROXYUREA [Suspect]
     Active Substance: HYDROXYUREA
     Dosage: DAY 8
  22. URSODIOL [Suspect]
     Active Substance: URSODIOL
     Indication: Antiviral prophylaxis
     Dosage: AT THE START OF CYCLE

REACTIONS (9)
  - Neutropenia [Recovering/Resolving]
  - Thrombocytopenia [Recovering/Resolving]
  - Hyperglycaemia [Recovering/Resolving]
  - Hyperphosphataemia [Recovering/Resolving]
  - Anaemia [Recovering/Resolving]
  - Cytokine release syndrome [Recovering/Resolving]
  - Testis cancer [Recovering/Resolving]
  - Pancreatitis [Recovering/Resolving]
  - Hypertriglyceridaemia [Recovering/Resolving]
